FAERS Safety Report 10359130 (Version 2)
Quarter: 2014Q4

REPORT INFORMATION
  Report Type: Spontaneous
  Country: BE (occurrence: BE)
  Receive Date: 20140804
  Receipt Date: 20141023
  Transmission Date: 20150528
  Serious: Yes (Other)
  Sender: FDA-Public Use
  Company Number: BE-009507513-1407BEL014616

PATIENT
  Age: 30 Year
  Sex: Female
  Weight: 90 kg

DRUGS (3)
  1. TEMODAL [Suspect]
     Active Substance: TEMOZOLOMIDE
     Indication: OLIGODENDROGLIOMA
     Dosage: 6 CYCLI
     Route: 048
     Dates: start: 200504
  2. TEMODAL [Suspect]
     Active Substance: TEMOZOLOMIDE
     Dosage: 9 CYCLI
     Route: 048
     Dates: start: 201211, end: 201308
  3. TEMODAL [Suspect]
     Active Substance: TEMOZOLOMIDE
     Indication: OLIGODENDROGLIOMA
     Dosage: 386MG/DAY FOR 5 DAYS
     Route: 042
     Dates: start: 201401

REACTIONS (7)
  - Disease progression [Unknown]
  - Dysphagia [Recovered/Resolved]
  - Off label use [Unknown]
  - Cytoreductive surgery [Unknown]
  - Drug intolerance [Unknown]
  - Drug intolerance [Unknown]
  - Radiotherapy [Unknown]

NARRATIVE: CASE EVENT DATE: 2005
